FAERS Safety Report 14262489 (Version 4)
Quarter: 2018Q1

REPORT INFORMATION
  Report Type: Spontaneous
  Country: DE (occurrence: DE)
  Receive Date: 20171208
  Receipt Date: 20180205
  Transmission Date: 20180508
  Serious: Yes (Other)
  Sender: FDA-Public Use
  Company Number: DE-CONCORDIA PHARMACEUTICALS INC.-E2B_00008541

PATIENT
  Age: 52 Year
  Sex: Female

DRUGS (5)
  1. PREDNISOLONE. [Suspect]
     Active Substance: PREDNISOLONE
     Dosage: REDUCED TO 80 MG/DAY AND AGAIN REDUCED
  2. PREDNISOLONE. [Suspect]
     Active Substance: PREDNISOLONE
  3. MYCOPHENOLATE MOFETIL. [Suspect]
     Active Substance: MYCOPHENOLATE MOFETIL
     Indication: PEMPHIGUS
     Dosage: HIGH-DOSE CORTICOSTEROID
  4. PREDNISOLONE. [Suspect]
     Active Substance: PREDNISOLONE
     Indication: PEMPHIGUS
     Dosage: INCREASED TO 200 MG/DAY AND THEN REDUCED
  5. PREDNISOLONE. [Suspect]
     Active Substance: PREDNISOLONE
     Dosage: 2 MG/KG BODY WEIGHT

REACTIONS (6)
  - Varicella zoster virus infection [Recovering/Resolving]
  - Atypical pneumonia [Recovering/Resolving]
  - Infection reactivation [Recovering/Resolving]
  - Pemphigus [Recovering/Resolving]
  - Cytomegalovirus infection [Recovering/Resolving]
  - Herpes simplex [Recovering/Resolving]
